FAERS Safety Report 4736219-X (Version None)
Quarter: 2005Q3

REPORT INFORMATION
  Report Type: 
  Country: None (occurrence: None)
  Receive Date: 20050808
  Receipt Date: 20050617
  Transmission Date: 20060218
  Serious: Yes (Hospitalization)
  Sender: FDA-Public Use
  Company Number: PHFR2005GB02187

PATIENT
  Age: 33 Year
  Sex: Male

DRUGS (4)
  1. CLOZARIL [Suspect]
     Indication: SCHIZOPHRENIA
     Dosage: 175MG/DAY
     Route: 048
     Dates: start: 20040930
  2. CLOZARIL [Suspect]
     Dosage: 5X100MG
     Route: 048
     Dates: start: 20050616
  3. CLOZARIL [Suspect]
     Dosage: 125MG/DAY
     Route: 048
  4. ZOPICLONE [Concomitant]
     Indication: INSOMNIA
     Dosage: 3.75 MG, PRN
     Route: 048

REACTIONS (2)
  - ACCIDENTAL OVERDOSE [None]
  - MEDICATION ERROR [None]
